FAERS Safety Report 4522124-0 (Version None)
Quarter: 2004Q4

REPORT INFORMATION
  Report Type: 
  Country: None (occurrence: None)
  Receive Date: 20041207
  Receipt Date: 20041124
  Transmission Date: 20050328
  Serious: Yes (Hospitalization)
  Sender: FDA-Public Use
  Company Number: 2004UW19462

PATIENT
  Age: 29 Year
  Sex: Female
  Weight: 73.9363 kg

DRUGS (7)
  1. SEROQUEL [Suspect]
     Indication: BIPOLAR I DISORDER
     Dosage: 200 MG BID PO
     Route: 048
     Dates: start: 20040806, end: 20040809
  2. SEROQUEL [Suspect]
     Indication: BIPOLAR I DISORDER
     Dosage: 600 MG ONCE PO
     Route: 048
     Dates: start: 20040909, end: 20040909
  3. IRON [Concomitant]
  4. IBUPROFEN [Concomitant]
  5. VALPROIC ACID [Concomitant]
  6. PHENTERMINE [Concomitant]
  7. DARVOCET-N 100 [Concomitant]

REACTIONS (5)
  - BLOOD GLUCOSE INCREASED [None]
  - DRUG TOXICITY [None]
  - DYSPNOEA [None]
  - INTENTIONAL OVERDOSE [None]
  - SUICIDAL IDEATION [None]
